FAERS Safety Report 4680972-0 (Version None)
Quarter: 2005Q2

REPORT INFORMATION
  Report Type: 
  Country: None (occurrence: None)
  Receive Date: 20050601
  Receipt Date: 20050518
  Transmission Date: 20051028
  Serious: Yes (Hospitalization)
  Sender: FDA-Public Use
  Company Number: 2005077249

PATIENT
  Age: 42 Year
  Sex: Male

DRUGS (3)
  1. CELEBREX [Suspect]
     Indication: POLYARTHRITIS
     Dosage: ORAL
     Route: 048
     Dates: start: 20041215, end: 20050404
  2. TIOPRONIN [Suspect]
     Indication: POLYARTHRITIS
     Dosage: ORAL
     Route: 048
     Dates: end: 20050404
  3. LEVOTHYROXINE SODIUM [Concomitant]

REACTIONS (13)
  - ACUTE VESTIBULAR SYNDROME [None]
  - ANTINUCLEAR ANTIBODY POSITIVE [None]
  - DERMATOMYOSITIS [None]
  - DIPLOPIA [None]
  - EYELID DISORDER [None]
  - FACE OEDEMA [None]
  - GAIT DISTURBANCE [None]
  - LUPUS-LIKE SYNDROME [None]
  - MYASTHENIC SYNDROME [None]
  - NYSTAGMUS [None]
  - RASH ERYTHEMATOUS [None]
  - SKIN HYPERPIGMENTATION [None]
  - VERTIGO [None]
